FAERS Safety Report 12599627 (Version 1)
Quarter: 2016Q3

REPORT INFORMATION
  Report Type: Spontaneous
  Country: US (occurrence: US)
  Receive Date: 20160727
  Receipt Date: 20160727
  Transmission Date: 20161109
  Serious: Yes (Other)
  Sender: FDA-Public Use
  Company Number: US-ENDO PHARMACEUTICALS INC.-2016-004666

PATIENT
  Sex: Male

DRUGS (1)
  1. TESTOPEL [Suspect]
     Active Substance: TESTOSTERONE
     Indication: ANDROGEN REPLACEMENT THERAPY
     Route: 058
     Dates: start: 201404, end: 201510

REACTIONS (3)
  - Thrombosis [Unknown]
  - Deep vein thrombosis [Unknown]
  - Mesenteric vein thrombosis [Unknown]

NARRATIVE: CASE EVENT DATE: 201407
